FAERS Safety Report 8846123 (Version 2)
Quarter: 2013Q3

REPORT INFORMATION
  Report Type: Report from Study
  Country: US (occurrence: US)
  Receive Date: 20121017
  Receipt Date: 20130912
  Transmission Date: 20140515
  Serious: Yes (Hospitalization)
  Sender: FDA-Public Use
  Company Number: US-ELI_LILLY_AND_COMPANY-US201206009374

PATIENT
  Age: 47 Year
  Sex: Female

DRUGS (18)
  1. TERIPARATIDE [Suspect]
     Indication: OSTEOPOROSIS
     Dosage: 20 UG, QD
     Route: 065
     Dates: start: 20120524
  2. TERIPARATIDE [Suspect]
     Dosage: 20 UG, QD
     Route: 065
  3. TERIPARATIDE [Suspect]
     Dosage: 20 UG, QD
     Route: 065
  4. TERIPARATIDE [Suspect]
     Dosage: 20 UG, QD
     Route: 065
     Dates: start: 20120628
  5. TERIPARATIDE [Suspect]
     Dosage: UNK, QD
     Dates: start: 201305
  6. COUMADIN [Concomitant]
     Indication: COAGULOPATHY
     Dosage: 2 MG, 4/W
  7. COUMADIN [Concomitant]
     Dosage: 1 MG, 3/W
  8. VITAMIN D [Concomitant]
     Dosage: 50000 IU, WEEKLY (1/W)
  9. CALCIUM 500+D [Concomitant]
     Dosage: UNK, QD
  10. PLAQUENIL [Concomitant]
     Dosage: 400 MG, QD
  11. ATIVAN [Concomitant]
     Dosage: 2 MG, QD
  12. LUNESTA [Concomitant]
     Dosage: 3 MG, QD
  13. POTASSIUM [Concomitant]
     Dosage: 10 MEQ, QD
  14. SYNTHROID [Concomitant]
     Dosage: 0.75 MG, QD
  15. REQUIP [Concomitant]
     Dosage: 1 MG, QD
  16. SIMVASTATIN [Concomitant]
     Dosage: 40 MG, UNK
  17. PREDNISONE [Concomitant]
     Dosage: 7 MG, QD
  18. ULTRAM [Concomitant]
     Dosage: 300 MG, OTHER

REACTIONS (12)
  - Intervertebral disc compression [Unknown]
  - Post procedural complication [Unknown]
  - Feeling abnormal [Unknown]
  - Muscle spasms [Not Recovered/Not Resolved]
  - Incorrect product storage [Unknown]
  - Laboratory test abnormal [Unknown]
  - Skeletal injury [Unknown]
  - Abdominal hernia [Not Recovered/Not Resolved]
  - Body height decreased [Unknown]
  - Muscular weakness [Unknown]
  - Injection site bruising [Unknown]
  - Injection site haemorrhage [Recovered/Resolved]
